FAERS Safety Report 21270490 (Version 1)
Quarter: 2022Q3

REPORT INFORMATION
  Report Type: Spontaneous
  Country: CA (occurrence: CA)
  Receive Date: 20220830
  Receipt Date: 20220830
  Transmission Date: 20221027
  Serious: Yes (Life-Threatening)
  Sender: FDA-Public Use
  Company Number: CA-TEVA-2022-CA-2067547

PATIENT
  Age: 70 Year
  Sex: Male

DRUGS (1)
  1. PRAZOSIN [Suspect]
     Active Substance: PRAZOSIN
     Indication: Hypertension
     Dosage: 6 MILLIGRAM DAILY; 2.0 DAYS
     Route: 048

REACTIONS (2)
  - Anaphylactic shock [Recovered/Resolved]
  - Rash maculo-papular [Recovered/Resolved]
